FAERS Safety Report 9321691 (Version 1)
Quarter: 2013Q2

REPORT INFORMATION
  Report Type: Spontaneous
  Country: DE (occurrence: DE)
  Receive Date: 20130531
  Receipt Date: 20130531
  Transmission Date: 20140414
  Serious: No
  Sender: FDA-Public Use
  Company Number: DE-JNJFOC-20130513510

PATIENT
  Sex: Male

DRUGS (3)
  1. DUROGESIC SMAT [Suspect]
     Indication: TUMOUR PAIN
     Dosage: 175+25 UG/HR
     Route: 062
  2. DUROGESIC SMAT [Suspect]
     Indication: TUMOUR PAIN
     Route: 062
  3. ABSTRAL [Suspect]
     Indication: PRODUCT USED FOR UNKNOWN INDICATION
     Route: 065

REACTIONS (3)
  - Drug ineffective [Unknown]
  - Treatment noncompliance [Unknown]
  - Incorrect dose administered [Unknown]
